FAERS Safety Report 12409990 (Version 2)
Quarter: 2017Q3

REPORT INFORMATION
  Report Type: Report from Study
  Country: US (occurrence: US)
  Receive Date: 20160527
  Receipt Date: 20170919
  Transmission Date: 20171127
  Serious: Yes (Other)
  Sender: FDA-Public Use
  Company Number: US-ROCHE-1762721

PATIENT
  Sex: Female

DRUGS (3)
  1. RITUXAN [Suspect]
     Active Substance: RITUXIMAB
     Indication: MULTIPLE SCLEROSIS
     Route: 042
     Dates: start: 201504
  2. RITUXAN [Suspect]
     Active Substance: RITUXIMAB
     Route: 042
     Dates: start: 20170314
  3. RITUXAN [Suspect]
     Active Substance: RITUXIMAB
     Route: 042
     Dates: start: 20170328

REACTIONS (8)
  - Aphasia [Unknown]
  - Eyelid oedema [Unknown]
  - Coordination abnormal [Unknown]
  - Intentional product use issue [Unknown]
  - Off label use [Unknown]
  - Erythema [Unknown]
  - Rash macular [Unknown]
  - Amnesia [Not Recovered/Not Resolved]
